FAERS Safety Report 10075587 (Version 1)
Quarter: 2014Q2

REPORT INFORMATION
  Report Type: Spontaneous
  Country: GB (occurrence: GB)
  Receive Date: 20140414
  Receipt Date: 20140414
  Transmission Date: 20141212
  Serious: Yes (Other)
  Sender: FDA-Public Use
  Company Number: GB-JNJFOC-20140406082

PATIENT
  Age: 62 Year
  Sex: Female
  Weight: 125 kg

DRUGS (10)
  1. XARELTO [Suspect]
     Indication: EMBOLISM VENOUS
     Route: 048
     Dates: start: 20131216, end: 20140321
  2. XARELTO [Suspect]
     Indication: PULMONARY EMBOLISM
     Route: 048
     Dates: start: 20131216, end: 20140321
  3. XARELTO [Suspect]
     Indication: DEEP VEIN THROMBOSIS
     Route: 048
     Dates: start: 20131216, end: 20140321
  4. FERROUS FUMARATE [Concomitant]
     Route: 065
     Dates: start: 20140321
  5. FUROSEMIDE [Concomitant]
     Route: 065
     Dates: start: 20140305
  6. LISINOPRIL [Concomitant]
     Route: 065
     Dates: start: 20140114
  7. OMEPRAZOLE [Concomitant]
     Route: 065
     Dates: start: 20131204
  8. QUETIAPINE [Concomitant]
     Route: 065
     Dates: start: 20140320
  9. SIMVASTATIN [Concomitant]
     Route: 065
     Dates: start: 20140114
  10. VENLAFAXINE [Concomitant]
     Route: 065
     Dates: start: 20131227, end: 20140303

REACTIONS (1)
  - Iron deficiency anaemia [Recovering/Resolving]
